FAERS Safety Report 11116773 (Version 1)
Quarter: 2015Q2

REPORT INFORMATION
  Report Type: Spontaneous
  Country: US (occurrence: US)
  Receive Date: 20150515
  Receipt Date: 20150515
  Transmission Date: 20150821
  Serious: No
  Sender: FDA-Public Use
  Company Number: US-BAYER-2015-230170

PATIENT
  Age: 83 Year
  Sex: Female
  Weight: 77.98 kg

DRUGS (3)
  1. ALEVE [Suspect]
     Active Substance: NAPROXEN SODIUM
     Indication: BACK PAIN
     Dosage: 2 DF, UNK
     Route: 048
  2. ALEVE [Suspect]
     Active Substance: NAPROXEN SODIUM
     Indication: BACK PAIN
     Dosage: 2 DF, IN THE MORNING AND 12 HOURS LATER 1 MORE
     Route: 048
     Dates: start: 20150510, end: 20150511
  3. ALEVE [Suspect]
     Active Substance: NAPROXEN SODIUM
     Indication: BACK PAIN
     Dosage: 2 DF, AND 12 HOURS LATER 2 MORE
     Route: 048
     Dates: start: 20150512, end: 20150512

REACTIONS (2)
  - Extra dose administered [None]
  - Peripheral swelling [Not Recovered/Not Resolved]

NARRATIVE: CASE EVENT DATE: 20150512
